FAERS Safety Report 11148248 (Version 1)
Quarter: 2015Q2

REPORT INFORMATION
  Report Type: Spontaneous
  Country: IE (occurrence: IE)
  Receive Date: 20150529
  Receipt Date: 20150529
  Transmission Date: 20150821
  Serious: Yes (Other)
  Sender: FDA-Public Use
  Company Number: IE-MALLINCKRODT-T201502729

PATIENT
  Age: 37 Year
  Sex: Female

DRUGS (2)
  1. OPTIRAY 300 [Suspect]
     Active Substance: IOVERSOL
     Indication: COMPUTERISED TOMOGRAM
  2. OPTIRAY 300 [Suspect]
     Active Substance: IOVERSOL
     Indication: HAEMATURIA
     Dosage: 90 ML, SINGLE
     Route: 042
     Dates: start: 20150506, end: 20150506

REACTIONS (2)
  - Throat irritation [Recovered/Resolved]
  - Lip swelling [Recovered/Resolved]

NARRATIVE: CASE EVENT DATE: 20150506
